FAERS Safety Report 8487873-0 (Version None)
Quarter: 2012Q3

REPORT INFORMATION
  Report Type: 
  Country: None (occurrence: None)
  Receive Date: 20120705
  Receipt Date: 20120626
  Transmission Date: 20120928
  Serious: Yes (Other)
  Sender: FDA-Public Use
  Company Number: US-US-EMD SERONO, INC.-7130216

PATIENT
  Sex: Female
  Weight: 68 kg

DRUGS (3)
  1. IBUPROFEN (ADVIL) [Concomitant]
     Indication: PREMEDICATION
  2. REBIF [Suspect]
     Indication: MULTIPLE SCLEROSIS
     Dates: start: 20080101
  3. UNSPECIFIED [Concomitant]
     Indication: PITUITARY TUMOUR

REACTIONS (3)
  - FALL [None]
  - INJECTION SITE HAEMATOMA [None]
  - LIMB INJURY [None]
